FAERS Safety Report 5673741-6 (Version None)
Quarter: 2008Q1

REPORT INFORMATION
  Report Type: 
  Country: None (occurrence: None)
  Receive Date: 20080319
  Receipt Date: 20070702
  Transmission Date: 20080703
  Serious: Yes (Hospitalization)
  Sender: FDA-Public Use
  Company Number: FR-MERCK-0703FRA00073

PATIENT
  Age: 44 Year
  Sex: Female

DRUGS (3)
  1. INDOCIN [Suspect]
     Indication: SCIATICA
     Route: 048
     Dates: start: 20070123, end: 20070131
  2. CLONAZEPAM [Concomitant]
     Indication: SCIATICA
     Route: 048
     Dates: start: 20070123, end: 20070131
  3. ASPIRIN AND CAFFEINE AND PROPOXYPHENE HYDROCHLORIDE [Concomitant]
     Indication: SCIATICA
     Route: 048
     Dates: start: 20070123, end: 20070131

REACTIONS (3)
  - HEADACHE [None]
  - PHOTOPHOBIA [None]
  - SPEECH DISORDER [None]
